FAERS Safety Report 17761742 (Version 1)
Quarter: 2020Q2

REPORT INFORMATION
  Report Type: Spontaneous
  Country: FR (occurrence: FR)
  Receive Date: 20200508
  Receipt Date: 20200508
  Transmission Date: 20200714
  Serious: Yes (Death)
  Sender: FDA-Public Use
  Company Number: FR-CADILA HEALTHCARE LIMITED-FR-ZYDUS-027118

PATIENT

DRUGS (10)
  1. FUMAFER [Suspect]
     Active Substance: FERROUS FUMARATE
     Indication: PRODUCT USED FOR UNKNOWN INDICATION
     Dosage: 3 DOSAGE FORM,3 DF, DAILY,(INTERVAL :1 DAYS)
     Route: 048
     Dates: end: 20150220
  2. VENLAFAXINE [Suspect]
     Active Substance: VENLAFAXINE HYDROCHLORIDE
     Indication: DEPRESSION
     Dosage: 37.5 MILLIGRAM,37.5 MG, 2X/DAY,(INTERVAL :1 DAYS)
     Route: 048
     Dates: end: 20150228
  3. CORDARON [Suspect]
     Active Substance: AMIODARONE HYDROCHLORIDE
     Indication: ATRIAL FIBRILLATION
     Dosage: 200 MILLIGRAM,200 MG, DAILY,(INTERVAL :1 DAYS)
     Route: 048
     Dates: end: 20150228
  4. TRANSIPEG [Concomitant]
     Dosage: UNK
  5. LORAZEPAM. [Suspect]
     Active Substance: LORAZEPAM
     Indication: ANXIETY
     Dosage: 2 DOSAGE FORM,2 DF, DAILY,(INTERVAL :1 DAYS)
     Route: 048
     Dates: end: 20150228
  6. KARDEGIC [Suspect]
     Active Substance: ASPIRIN DL-LYSINE
     Indication: ATRIAL FIBRILLATION
     Dosage: 75 MILLIGRAM,75 MG, DAILY,(INTERVAL :1 DAYS)
     Route: 048
     Dates: end: 20150228
  7. NORSET [Suspect]
     Active Substance: MIRTAZAPINE
     Indication: PRODUCT USED FOR UNKNOWN INDICATION
     Dosage: 30 MILLIGRAM,30 MG, DAILY,(INTERVAL :1 DAYS)
     Route: 048
     Dates: start: 20150228, end: 20150228
  8. MODOPAR [Suspect]
     Active Substance: BENSERAZIDE HYDROCHLORIDE\LEVODOPA
     Indication: PARKINSONISM
     Dosage: 62.5 MILLIGRAM,62.5 MG, 3X/DAY,(INTERVAL :1 DAYS)
     Route: 048
     Dates: end: 20150228
  9. DOLIPRANE [Suspect]
     Active Substance: ACETAMINOPHEN
     Indication: PRODUCT USED FOR UNKNOWN INDICATION
     Dosage: 500 MILLIGRAM,500 MG, EVERY 4 HRS,(INTERVAL :1 DAYS)
     Route: 048
     Dates: end: 20150228
  10. ODRIK [Suspect]
     Active Substance: TRANDOLAPRIL
     Indication: HYPERTENSION
     Dosage: 4 MILLIGRAM,4 MG, DAILY,(INTERVAL :1 DAYS)
     Route: 048
     Dates: end: 20150228

REACTIONS (1)
  - Cerebellar haematoma [Fatal]

NARRATIVE: CASE EVENT DATE: 20150301
